FAERS Safety Report 14639784 (Version 4)
Quarter: 2018Q3

REPORT INFORMATION
  Report Type: Report from Study
  Country: US (occurrence: US)
  Receive Date: 20180315
  Receipt Date: 20180914
  Transmission Date: 20181010
  Serious: Yes (Hospitalization)
  Sender: FDA-Public Use
  Company Number: PHEH2018US009143

PATIENT
  Sex: Female

DRUGS (1)
  1. GILENYA [Suspect]
     Active Substance: FINGOLIMOD HYDROCHLORIDE
     Indication: MULTIPLE SCLEROSIS
     Route: 065

REACTIONS (9)
  - Fall [Unknown]
  - Confusional state [Unknown]
  - Affect lability [Unknown]
  - Insomnia [Unknown]
  - Amnesia [Unknown]
  - Cerebrovascular accident [Unknown]
  - Crying [Unknown]
  - Seizure [Unknown]
  - Feeling abnormal [Unknown]
